FAERS Safety Report 6701178-7 (Version None)
Quarter: 2010Q2

REPORT INFORMATION
  Report Type: 
  Country: None (occurrence: None)
  Receive Date: 20100428
  Receipt Date: 20100419
  Transmission Date: 20101027
  Serious: Yes (Other)
  Sender: FDA-Public Use
  Company Number: BR-GENENTECH-301006

PATIENT

DRUGS (1)
  1. RANIBIZUMAB [Suspect]
     Indication: MACULAR DEGENERATION
     Route: 031

REACTIONS (6)
  - CATARACT [None]
  - CONJUNCTIVAL HAEMORRHAGE [None]
  - ENDOPHTHALMITIS [None]
  - EYE INFLAMMATION [None]
  - EYE PAIN [None]
  - VITREOUS HAEMORRHAGE [None]
